FAERS Safety Report 9681753 (Version 2)
Quarter: 2014Q1

REPORT INFORMATION
  Report Type: Spontaneous
  Country: RU (occurrence: RU)
  Receive Date: 20131111
  Receipt Date: 20140324
  Transmission Date: 20141002
  Serious: Yes (Death)
  Sender: FDA-Public Use
  Company Number: RU-VIIV HEALTHCARE LIMITED-B0941226A

PATIENT
  Sex: Male
  Weight: 98 kg

DRUGS (5)
  1. MARAVIROC [Suspect]
     Indication: HIV INFECTION
     Route: 065
     Dates: start: 201304, end: 201306
  2. STAVUDINE [Concomitant]
     Indication: HIV INFECTION
     Dosage: 1TAB TWICE PER DAY
     Route: 065
     Dates: start: 20111006, end: 20130120
  3. EPIVIR [Concomitant]
     Indication: HIV INFECTION
     Dosage: 1TAB TWICE PER DAY
     Route: 065
     Dates: start: 20111006, end: 20130401
  4. STOCRIN [Concomitant]
     Indication: HIV INFECTION
     Dosage: 1TAB PER DAY
     Route: 065
     Dates: start: 20111006, end: 20130401
  5. KIVEXA [Concomitant]
     Dosage: 1TAB PER DAY
     Dates: start: 20130402

REACTIONS (1)
  - Diffuse large B-cell lymphoma stage IV [Fatal]
